FAERS Safety Report 6049345-2 (Version None)
Quarter: 2009Q1

REPORT INFORMATION
  Report Type: 
  Country: None (occurrence: None)
  Receive Date: 20090123
  Receipt Date: 20090114
  Transmission Date: 20090719
  Serious: Yes (Other)
  Sender: FDA-Public Use
  Company Number: US-PFIZER INC-2009158195

PATIENT
  Age: 8 Year
  Sex: Female
  Weight: 19.976 kg

DRUGS (1)
  1. ZYRTEC [Suspect]
     Indication: URTICARIA
     Dosage: ONE TEASPOON ONCE A DAY
     Route: 048
     Dates: start: 20050101

REACTIONS (4)
  - GROWTH RETARDATION [None]
  - INCORRECT DRUG ADMINISTRATION DURATION [None]
  - UNDERWEIGHT [None]
  - WRONG DRUG ADMINISTERED [None]
